FAERS Safety Report 14845024 (Version 4)
Quarter: 2018Q4

REPORT INFORMATION
  Report Type: Report from Study
  Country: US (occurrence: US)
  Receive Date: 20180504
  Receipt Date: 20181219
  Transmission Date: 20190204
  Serious: Yes (Death, Hospitalization, Other)
  Sender: FDA-Public Use
  Company Number: US-BRISTOL-MYERS SQUIBB COMPANY-BMS-2018-039956

PATIENT
  Age: 44 Year
  Sex: Male
  Weight: 81.6 kg

DRUGS (2)
  1. IPILIMUMAB [Suspect]
     Active Substance: IPILIMUMAB
     Indication: TESTIS CANCER
     Dosage: 1 MG/KG, UNK
     Route: 042
     Dates: start: 20180227, end: 20180412
  2. NIVOLUMAB [Suspect]
     Active Substance: NIVOLUMAB
     Indication: TESTIS CANCER
     Dosage: 240 MG, UNK
     Route: 042
     Dates: start: 20180227, end: 20180412

REACTIONS (17)
  - Vomiting [Unknown]
  - Decreased appetite [Unknown]
  - Hypoalbuminaemia [Unknown]
  - Pneumonia aspiration [Recovered/Resolved]
  - Bile duct obstruction [Unknown]
  - Abdominal pain [Unknown]
  - Death [Fatal]
  - Dehydration [Recovered/Resolved]
  - Lymphoedema [Unknown]
  - Device related infection [Not Recovered/Not Resolved]
  - Anaemia [Not Recovered/Not Resolved]
  - Sepsis [Not Recovered/Not Resolved]
  - Ileus [Unknown]
  - Weight decreased [Recovered/Resolved]
  - Hypocalcaemia [Not Recovered/Not Resolved]
  - Blood creatinine increased [Recovered/Resolved]
  - Acute kidney injury [Unknown]

NARRATIVE: CASE EVENT DATE: 20180313
